FAERS Safety Report 6274589-4 (Version None)
Quarter: 2009Q3

REPORT INFORMATION
  Report Type: 
  Country: None (occurrence: None)
  Receive Date: 20090720
  Receipt Date: 20090710
  Transmission Date: 20100115
  Serious: Yes (Hospitalization, Disabling, Other)
  Sender: FDA-Public Use
  Company Number: ZA-AVENTIS-200916750GDDC

PATIENT
  Age: 62 Year
  Sex: Female

DRUGS (11)
  1. LANTUS [Suspect]
     Route: 058
     Dates: start: 20051001
  2. ETIFOXINE [Concomitant]
     Indication: ANXIETY
     Route: 048
     Dates: start: 20090401
  3. GLIBENCLAMIDE [Concomitant]
     Route: 048
     Dates: start: 20041201
  4. ZOLPIDEM [Concomitant]
     Indication: INSOMNIA
     Route: 048
     Dates: start: 20090501
  5. METFORMIN HCL [Concomitant]
     Route: 048
     Dates: start: 20050701
  6. IRBESARTAN AND HCTZ [Concomitant]
     Indication: HYPERTENSION
     Dosage: DOSE: 300/12.5
     Route: 048
     Dates: start: 20040701
  7. AMLODIPINE [Concomitant]
     Indication: HYPERTENSION
     Route: 048
     Dates: start: 20050301
  8. SIMVASTATIN [Concomitant]
     Route: 048
     Dates: start: 20050801
  9. LEVOTHYROXINE SODIUM [Concomitant]
     Indication: HYPOTHYROIDISM
     Route: 048
  10. NEBIVOLOL [Concomitant]
     Indication: HYPERTENSION
     Route: 048
  11. PAROXETINE HCL [Concomitant]
     Indication: DEPRESSION
     Route: 048

REACTIONS (1)
  - BREAST CANCER [None]
